FAERS Safety Report 7644656-9 (Version None)
Quarter: 2011Q3

REPORT INFORMATION
  Report Type: 
  Country: None (occurrence: None)
  Receive Date: 20110729
  Receipt Date: 20110715
  Transmission Date: 20111222
  Serious: Yes (Hospitalization)
  Sender: FDA-Public Use
  Company Number: US-UCBSA-035628

PATIENT
  Sex: Male
  Weight: 71.21 kg

DRUGS (7)
  1. ENTOCORT EC [Concomitant]
     Indication: CROHN'S DISEASE
     Route: 048
     Dates: start: 20110106
  2. GABAPENTIN [Concomitant]
     Indication: NEURALGIA
     Route: 048
     Dates: start: 20110101
  3. DILAUDID [Concomitant]
     Indication: PAIN
     Dosage: 1-2 TABS Q6H PRN
  4. CIMZIA [Suspect]
     Indication: CROHN'S DISEASE
     Route: 058
     Dates: start: 20110425, end: 20110609
  5. PENTASA [Concomitant]
     Indication: CROHN'S DISEASE
     Route: 048
     Dates: start: 20110105
  6. ACETAMINOPHEN [Concomitant]
  7. CONCERTA [Concomitant]
     Indication: ATTENTION DEFICIT/HYPERACTIVITY DISORDER
     Route: 048

REACTIONS (3)
  - PELVIC ABSCESS [None]
  - SUBCUTANEOUS ABSCESS [None]
  - FISTULA [None]
